FAERS Safety Report 12799864 (Version 1)
Quarter: 2016Q3

REPORT INFORMATION
  Report Type: Spontaneous
  Country: US (occurrence: US)
  Receive Date: 20160930
  Receipt Date: 20160930
  Transmission Date: 20161109
  Serious: Yes (Other)
  Sender: FDA-Public Use
  Company Number: US-TEVA-697522ACC

PATIENT
  Age: 29 Year
  Sex: Female
  Weight: 87.17 kg

DRUGS (2)
  1. LEVOYTHYROXINE [Concomitant]
  2. PARAGARD T 380A [Suspect]
     Active Substance: COPPER
     Indication: CONTRACEPTION
     Dates: start: 20160801, end: 20160908

REACTIONS (4)
  - Device dislocation [Recovered/Resolved]
  - Vulvovaginal discomfort [Unknown]
  - Vaginal infection [Unknown]
  - Vulvovaginal pruritus [Unknown]

NARRATIVE: CASE EVENT DATE: 20160908
